FAERS Safety Report 6042836-X (Version None)
Quarter: 2009Q1

REPORT INFORMATION
  Report Type: 
  Country: None (occurrence: None)
  Receive Date: 20090119
  Receipt Date: 20090114
  Transmission Date: 20090719
  Serious: Yes (Hospitalization)
  Sender: FDA-Public Use
  Company Number: IT-ALLERGAN-0900422US

PATIENT
  Sex: Male

DRUGS (7)
  1. EXOCIN [Suspect]
     Indication: SURGERY
     Dosage: 1 GTT, SINGLE
     Route: 047
     Dates: start: 20081112, end: 20081112
  2. GENTAMICIN [Suspect]
     Indication: SURGERY
     Dosage: UNK, UNK
     Route: 030
     Dates: start: 20081112
  3. ANTIDRASI [Suspect]
     Indication: SURGERY
     Dosage: UNK, UNK
     Route: 030
     Dates: start: 20081112
  4. DIAMOX [Suspect]
     Indication: SURGERY
     Route: 048
     Dates: start: 20081112
  5. AVASTIN [Suspect]
     Indication: SURGERY
     Route: 030
     Dates: start: 20081112
  6. VENTOLIN [Concomitant]
     Indication: BRONCHOPNEUMOPATHY
     Route: 048
     Dates: start: 20080101, end: 20081116
  7. LASIX [Concomitant]
     Indication: VENOUS INSUFFICIENCY
     Route: 048
     Dates: start: 20040101, end: 20081116

REACTIONS (1)
  - DERMATITIS BULLOUS [None]
